FAERS Safety Report 15703445 (Version 1)
Quarter: 2018Q4

REPORT INFORMATION
  Report Type: Spontaneous
  Country: US (occurrence: US)
  Receive Date: 20181209
  Receipt Date: 20181209
  Transmission Date: 20190205
  Serious: Yes (Disabling)
  Sender: FDA-Public Use
  Company Number: None

PATIENT
  Age: 43 Year
  Sex: Female
  Weight: 56.25 kg

DRUGS (1)
  1. JUNEL FE 1/20 [Suspect]
     Active Substance: ETHINYL ESTRADIOL\NORETHINDRONE ACETATE
     Indication: CONTRACEPTION
     Route: 048
     Dates: start: 20181007, end: 20181021

REACTIONS (7)
  - Product substitution issue [None]
  - Paraesthesia [None]
  - Tinnitus [None]
  - Anxiety [None]
  - Tremor [None]
  - Negative thoughts [None]
  - Disturbance in attention [None]

NARRATIVE: CASE EVENT DATE: 20181007
